FAERS Safety Report 6762766-5 (Version None)
Quarter: 2010Q2

REPORT INFORMATION
  Report Type: 
  Country: None (occurrence: None)
  Receive Date: 20100609
  Receipt Date: 20100602
  Transmission Date: 20101027
  Serious: Yes (Hospitalization)
  Sender: FDA-Public Use
  Company Number: B0625618A

PATIENT
  Sex: Male
  Weight: 91.5 kg

DRUGS (8)
  1. PAZOPANIB [Suspect]
     Indication: SARCOMA
     Dosage: 800MG PER DAY
     Route: 048
     Dates: start: 20091110, end: 20100112
  2. NIFEDIPINE [Concomitant]
     Dosage: 30MG PER DAY
     Route: 048
  3. OXYCONTIN [Concomitant]
     Dosage: 20MG TWICE PER DAY
     Route: 048
  4. PANTOPRAZOLE [Concomitant]
     Dosage: 40MG PER DAY
     Route: 048
  5. PARACETAMOL [Concomitant]
     Dosage: 1G FOUR TIMES PER DAY
     Route: 048
  6. OXYCODONE [Concomitant]
     Dosage: 5MG AS REQUIRED
     Route: 048
  7. COLOXYL WITH SENNA TABLETS [Concomitant]
     Dosage: 2TAB TWICE PER DAY
     Route: 048
  8. DEXAMETHASONE [Concomitant]
     Dosage: 2MG PER DAY
     Route: 048

REACTIONS (2)
  - DYSPNOEA EXERTIONAL [None]
  - PULMONARY EMBOLISM [None]
